FAERS Safety Report 6473976-9 (Version None)
Quarter: 2009Q4

REPORT INFORMATION
  Report Type: 
  Country: None (occurrence: None)
  Receive Date: 20091204
  Receipt Date: 20091125
  Transmission Date: 20100525
  Serious: Yes (Hospitalization, Other)
  Sender: FDA-Public Use
  Company Number: GB-BAYER-200938477GPV

PATIENT
  Age: 14 Year
  Sex: Male
  Weight: 62 kg

DRUGS (1)
  1. KOGENATE [Suspect]
     Indication: PROPHYLAXIS
     Dates: start: 20010101, end: 20090101

REACTIONS (2)
  - FACTOR VIII INHIBITION [None]
  - MUSCLE HAEMORRHAGE [None]
